FAERS Safety Report 6942979-X (Version None)
Quarter: 2010Q3

REPORT INFORMATION
  Report Type: 
  Country: None (occurrence: None)
  Receive Date: 20100824
  Receipt Date: 20100824
  Transmission Date: 20110219
  Serious: Yes (Disabling)
  Sender: FDA-Public Use
  Company Number: None

PATIENT
  Sex: Female
  Weight: 58.9676 kg

DRUGS (2)
  1. CIPROFLOXACIN HYDROCHLORIDE [Suspect]
     Indication: BRONCHITIS
     Dosage: 1 TABLET EVERY 12 HR. 10 DAYS
     Dates: start: 20100307, end: 20100317
  2. METHYLPREDNISOLONE 4MG TAB [Suspect]
     Indication: BRONCHITIS
     Dosage: 6 DAY SUPPLY  QTY 21
     Dates: start: 20100307, end: 20100313

REACTIONS (1)
  - TENDON RUPTURE [None]
